FAERS Safety Report 16525793 (Version 2)
Quarter: 2019Q4

REPORT INFORMATION
  Report Type: Spontaneous
  Country: US (occurrence: US)
  Receive Date: 20190703
  Receipt Date: 20191014
  Transmission Date: 20200122
  Serious: No
  Sender: FDA-Public Use
  Company Number: US-GLENMARK PHARMACEUTICALS-2019GMK041641

PATIENT

DRUGS (1)
  1. CLOBETASOL PROPIONATE OINTMENT USP [Suspect]
     Active Substance: CLOBETASOL PROPIONATE
     Indication: ECZEMA
     Dosage: ONCE A DAY AS NEEDED IF THERE WAS FLARE UPS; DURATION OF USE: 4 OR 5 MONTHS
     Route: 061

REACTIONS (3)
  - Expired product administered [Unknown]
  - No adverse event [Unknown]
  - Product container issue [Unknown]
